FAERS Safety Report 6448943-1 (Version None)
Quarter: 2009Q4

REPORT INFORMATION
  Report Type: 
  Country: None (occurrence: None)
  Receive Date: 20091120
  Receipt Date: 20091116
  Transmission Date: 20100525
  Serious: Yes (Other)
  Sender: FDA-Public Use
  Company Number: A0815924A

PATIENT
  Sex: Male
  Weight: 28.6 kg

DRUGS (5)
  1. LAMICTAL [Suspect]
     Dosage: 5MG PER DAY
     Route: 048
     Dates: start: 20091010
  2. CONCERTA [Concomitant]
     Dosage: 45MG PER DAY
     Route: 048
     Dates: start: 20081027
  3. RISPERIDONE [Concomitant]
     Dosage: 1MG PER DAY
     Route: 065
     Dates: start: 20091020
  4. CLONIDINE [Concomitant]
     Dosage: .275MG PER DAY
     Route: 065
     Dates: start: 20081008
  5. LOVAZA [Concomitant]
     Indication: DRUG USE FOR UNKNOWN INDICATION
     Route: 065
     Dates: start: 20070101

REACTIONS (6)
  - AFFECT LABILITY [None]
  - AGGRESSION [None]
  - AGITATION [None]
  - ANGER [None]
  - INSOMNIA [None]
  - MOOD SWINGS [None]
